FAERS Safety Report 15800607 (Version 1)
Quarter: 2019Q1

REPORT INFORMATION
  Report Type: Spontaneous
  Country: CN (occurrence: CN)
  Receive Date: 20190108
  Receipt Date: 20190108
  Transmission Date: 20190417
  Serious: Yes (Disabling)
  Sender: FDA-Public Use
  Company Number: CN-BAXTER-2019BAX000070

PATIENT
  Age: 71 Year
  Sex: Female
  Weight: 61 kg

DRUGS (13)
  1. 0.9% SODIUM CHLORIDE INJECTION [Suspect]
     Active Substance: SODIUM CHLORIDE
     Dosage: SOLVENT FOR NISONG
     Route: 041
     Dates: start: 20181112, end: 20181123
  2. METRONIDAZOLE AND SODIUM CHLORIDE INJECTION [Suspect]
     Active Substance: METRONIDAZOLE\SODIUM CHLORIDE
     Indication: CHOLECYSTITIS
     Route: 041
     Dates: start: 20181109, end: 20181123
  3. POLYENE PHOSPHATIDYLCHOLINE [Suspect]
     Active Substance: PHOSPHOLIPID
     Indication: PROPHYLAXIS
     Route: 041
     Dates: start: 20181109, end: 20181123
  4. 0.9% SODIUM CHLORIDE INJECTION [Suspect]
     Active Substance: SODIUM CHLORIDE
     Indication: MEDICATION DILUTION
     Dosage: SOLVENT FOR AZTREONAM
     Route: 041
     Dates: start: 20181109, end: 20181123
  5. AZTREONAM. [Suspect]
     Active Substance: AZTREONAM
     Indication: CHOLECYSTITIS
     Route: 041
     Dates: start: 20181109, end: 20181123
  6. MAGNESIUM ISOGLYCYRRHIZINATE [Suspect]
     Active Substance: MAGNESIUM ISOGLYCYRRHIZINATE
     Indication: PROPHYLAXIS
     Route: 041
     Dates: start: 20181109, end: 20181123
  7. METRONIDAZOLE AND SODIUM CHLORIDE INJECTION [Suspect]
     Active Substance: METRONIDAZOLE\SODIUM CHLORIDE
     Indication: ANTI-INFECTIVE THERAPY
  8. NISONG [Suspect]
     Active Substance: KETOROLAC TROMETHAMINE
     Indication: CHOLELITHIASIS
  9. AZTREONAM. [Suspect]
     Active Substance: AZTREONAM
     Indication: CHOLELITHIASIS
  10. NISONG [Suspect]
     Active Substance: KETOROLAC TROMETHAMINE
     Indication: CHOLECYSTITIS
     Route: 041
     Dates: start: 20181112, end: 20181123
  11. METRONIDAZOLE AND SODIUM CHLORIDE INJECTION [Suspect]
     Active Substance: METRONIDAZOLE\SODIUM CHLORIDE
     Indication: CHOLELITHIASIS
  12. NISONG [Suspect]
     Active Substance: KETOROLAC TROMETHAMINE
     Indication: ANALGESIC THERAPY
  13. AZTREONAM. [Suspect]
     Active Substance: AZTREONAM
     Indication: ANTI-INFECTIVE THERAPY

REACTIONS (2)
  - Hepatic function abnormal [Recovering/Resolving]
  - Condition aggravated [Recovering/Resolving]

NARRATIVE: CASE EVENT DATE: 20181114
